FAERS Safety Report 23633456 (Version 1)
Quarter: 2024Q1

REPORT INFORMATION
  Report Type: Spontaneous
  Country: US (occurrence: None)
  Receive Date: 20240314
  Receipt Date: 20240314
  Transmission Date: 20240410
  Serious: No
  Sender: FDA-Public Use
  Company Number: None

PATIENT
  Age: 35 Year
  Sex: Male
  Weight: 87 kg

DRUGS (1)
  1. SPRYCEL [Suspect]
     Active Substance: DASATINIB
     Dates: end: 20240111

REACTIONS (3)
  - Platelet count decreased [None]
  - White blood cell count decreased [None]
  - Neutrophil count [None]

NARRATIVE: CASE EVENT DATE: 20240123
